FAERS Safety Report 9705779 (Version 1)
Quarter: 2013Q4

REPORT INFORMATION
  Report Type: Spontaneous
  Country: US (occurrence: US)
  Receive Date: 20131122
  Receipt Date: 20131122
  Transmission Date: 20140711
  Serious: No
  Sender: FDA-Public Use
  Company Number: US-GILEAD-2008-0017987

PATIENT
  Sex: Female
  Weight: 71.21 kg

DRUGS (13)
  1. LETAIRIS [Suspect]
     Indication: PULMONARY ARTERIAL HYPERTENSION
     Route: 048
     Dates: start: 20080815, end: 20080902
  2. FOSAMAX [Concomitant]
     Route: 048
  3. ZOCOR [Concomitant]
     Route: 048
  4. CELEBREX [Concomitant]
     Route: 048
  5. PREMARIN [Concomitant]
     Route: 048
  6. ASPIRIN [Concomitant]
     Route: 048
  7. COMBIVENT [Concomitant]
     Indication: PULMONARY ARTERIAL HYPERTENSION
     Route: 048
  8. RANEXA [Concomitant]
  9. CO Q-10 [Concomitant]
  10. B-COMPLEX [Concomitant]
     Route: 048
  11. MULTIVITAMINS [Concomitant]
     Route: 048
  12. VITAMIN C [Concomitant]
     Route: 048
  13. VITAMIN E [Concomitant]

REACTIONS (5)
  - Productive cough [None]
  - Chest pain [None]
  - Chest discomfort [None]
  - Palpitations [None]
  - Hot flush [None]
